FAERS Safety Report 5061002-8 (Version None)
Quarter: 2006Q3

REPORT INFORMATION
  Report Type: 
  Country: None (occurrence: None)
  Receive Date: 20060720
  Receipt Date: 20060720
  Transmission Date: 20061208
  Serious: Yes (Hospitalization)
  Sender: FDA-Public Use
  Company Number: None

PATIENT
  Sex: Male

DRUGS (21)
  1. AMITRIPTYLINE HCL [Suspect]
     Dosage: 25 MG HS PO   AT LEAST 3 YR
     Route: 048
  2. COSOPT [Suspect]
     Indication: GLAUCOMA
     Dosage: 1 DROP L EYE BID OPHTHALMIC
     Route: 047
  3. BRIMONIDE [Concomitant]
  4. CALCIUM GLUCONATE [Concomitant]
  5. DIGOXIN [Concomitant]
  6. DOCUSATE [Concomitant]
  7. ENOXAPARIN SODIUM [Concomitant]
  8. FOLIC ACID [Concomitant]
  9. FUROSEMIDE [Concomitant]
  10. IBUPROFEN [Concomitant]
  11. LISINOPRIL [Concomitant]
  12. MAGNESIUM OXIDE [Concomitant]
  13. METOPROLOL [Concomitant]
  14. MULTIVITAMIN WITH MINERALS [Concomitant]
  15. OMEPRAZOLE [Concomitant]
  16. OXYCODONE AND ACETAMINOPHEN [Concomitant]
  17. PREDNISONE TAB [Concomitant]
  18. SENNA [Concomitant]
  19. TRAVOPROST [Concomitant]
  20. TRAZODONE HCL [Concomitant]
  21. WARFARIN [Concomitant]

REACTIONS (3)
  - ANAEMIA HAEMOLYTIC AUTOIMMUNE [None]
  - CHEST PAIN [None]
  - DYSPNOEA EXERTIONAL [None]
